FAERS Safety Report 10234429 (Version 1)
Quarter: 2014Q2

REPORT INFORMATION
  Report Type: Spontaneous
  Country: TW (occurrence: TW)
  Receive Date: 20140613
  Receipt Date: 20140613
  Transmission Date: 20141212
  Serious: Yes (Death, Other)
  Sender: FDA-Public Use
  Company Number: PHHY2014TW068694

PATIENT
  Age: 9 Year
  Sex: Male

DRUGS (1)
  1. AMOXICILLIN [Suspect]
     Indication: ACUTE TONSILLITIS
     Route: 062

REACTIONS (3)
  - Acute respiratory distress syndrome [Fatal]
  - Renal failure acute [Fatal]
  - Toxic epidermal necrolysis [Unknown]
